FAERS Safety Report 7460025-9 (Version None)
Quarter: 2011Q2

REPORT INFORMATION
  Report Type: 
  Country: None (occurrence: None)
  Receive Date: 20110427
  Receipt Date: 20110413
  Transmission Date: 20111010
  Serious: Yes (Hospitalization)
  Sender: FDA-Public Use
  Company Number: TCI2011A02534

PATIENT
  Age: 8 Decade
  Sex: Male

DRUGS (1)
  1. PREVPAC [Suspect]
     Indication: HELICOBACTER INFECTION
     Route: 048

REACTIONS (2)
  - GLOMERULONEPHRITIS RAPIDLY PROGRESSIVE [None]
  - ANTI-NEUTROPHIL CYTOPLASMIC ANTIBODY POSITIVE VASCULITIS [None]
